FAERS Safety Report 5578471-7 (Version None)
Quarter: 2007Q4

REPORT INFORMATION
  Report Type: 
  Country: None (occurrence: None)
  Receive Date: 20071231
  Receipt Date: 20071220
  Transmission Date: 20080405
  Serious: Yes (Death, Hospitalization, Other)
  Sender: FDA-Public Use
  Company Number: GB-PFIZER INC-2007099510

PATIENT
  Age: 53 Year
  Sex: Male

DRUGS (9)
  1. METRONIDAZOLE TABLET [Suspect]
     Indication: INFECTION
  2. DICLOFENAC SODIUM [Suspect]
     Indication: ANALGESIA
  3. AUGMENTIN '250' [Suspect]
     Indication: INFECTION
  4. GENTAMICIN [Suspect]
     Indication: INFECTION
  5. LEVOFLOXACIN [Suspect]
     Indication: INFECTION
  6. METOCLOPRAMIDE HYDROCHLORIDE [Suspect]
  7. OMEPRAZOLE [Suspect]
  8. PARACETAMOL [Suspect]
  9. VANCOMYCIN [Suspect]

REACTIONS (3)
  - DISORIENTATION [None]
  - METABOLIC ACIDOSIS [None]
  - MYOCARDIAL INFARCTION [None]
